FAERS Safety Report 11112587 (Version 1)
Quarter: 2015Q2

REPORT INFORMATION
  Report Type: Spontaneous
  Country: US (occurrence: None)
  Receive Date: 20150504
  Receipt Date: 20150504
  Transmission Date: 20150821
  Serious: Yes (Other)
  Sender: FDA-Public Use
  Company Number: 1437652

PATIENT
  Age: 51 Year
  Sex: Female

DRUGS (1)
  1. AVASTIN [Suspect]
     Active Substance: BEVACIZUMAB
     Indication: OVARIAN CANCER
     Dosage: 1 IN 3 WK, UNKNOWN
     Dates: start: 2010

REACTIONS (3)
  - Arthralgia [None]
  - Neuropathy peripheral [None]
  - Pulmonary thrombosis [None]
